FAERS Safety Report 16871254 (Version 1)
Quarter: 2019Q3

REPORT INFORMATION
  Report Type: Spontaneous
  Country: US (occurrence: US)
  Receive Date: 20190806
  Receipt Date: 20190806
  Transmission Date: 20191007
  Serious: Yes (Hospitalization)
  Sender: FDA-Public Use
  Company Number: None

PATIENT
  Age: 79 Year
  Sex: Male

DRUGS (2)
  1. LISINOPRIL. [Suspect]
     Active Substance: LISINOPRIL
     Indication: CARDIAC FAILURE CONGESTIVE
     Route: 048
     Dates: start: 20190412, end: 20190703
  2. FUROSEMIDE. [Suspect]
     Active Substance: FUROSEMIDE
     Indication: CARDIAC FAILURE CONGESTIVE
     Dosage: ?          OTHER FREQUENCY:AM;?
     Route: 048
     Dates: start: 20190620, end: 20190703

REACTIONS (6)
  - Hypotension [None]
  - Fall [None]
  - Presyncope [None]
  - Fluid overload [None]
  - Atrial fibrillation [None]
  - Hypovolaemia [None]

NARRATIVE: CASE EVENT DATE: 20190703
